FAERS Safety Report 6663920-3 (Version None)
Quarter: 2010Q2

REPORT INFORMATION
  Report Type: 
  Country: None (occurrence: None)
  Receive Date: 20100401
  Receipt Date: 20100329
  Transmission Date: 20101027
  Serious: Yes (Hospitalization)
  Sender: FDA-Public Use
  Company Number: DE-BRISTOL-MYERS SQUIBB COMPANY-15042823

PATIENT
  Age: 67 Year

DRUGS (10)
  1. CETUXIMAB [Suspect]
     Indication: HEAD AND NECK CANCER
     Dosage: RECENT INF-23MAR2010; INTERRUPTED
     Route: 042
     Dates: start: 20100316
  2. CARBOPLATIN [Suspect]
     Indication: HEAD AND NECK CANCER
     Dosage: RECENT INF-23MAR2010; INTERRUPTED
     Route: 042
     Dates: start: 20100316
  3. DOCETAXEL [Suspect]
     Indication: HEAD AND NECK CANCER
     Dosage: RECENT INF-23MAR2010; INTERRUPTED
     Route: 042
     Dates: start: 20100316
  4. ASPIRIN [Concomitant]
  5. RAMIPRIL [Concomitant]
  6. FUROSEMIDE [Concomitant]
     Dosage: 1DF- 40MG 1.5 DAILY
  7. SIMVASTATIN [Concomitant]
  8. PANTOPRAZOLE SODIUM [Concomitant]
  9. PASPERTIN [Concomitant]
  10. PIPERACILLIN AND TAZOBACTAM [Concomitant]

REACTIONS (1)
  - DYSPHAGIA [None]
